FAERS Safety Report 8166058-1 (Version None)
Quarter: 2012Q1

REPORT INFORMATION
  Report Type: 
  Country: None (occurrence: None)
  Receive Date: 20120227
  Receipt Date: 20110324
  Transmission Date: 20120608
  Serious: No
  Sender: FDA-Public Use
  Company Number: US-MYLANLABS-2011S1004253

PATIENT
  Age: 24 Year
  Sex: Female
  Weight: 54.43 kg

DRUGS (7)
  1. ASTEPRO [Concomitant]
  2. AMNESTEEM [Suspect]
     Indication: ACNE
     Route: 048
     Dates: start: 20101001, end: 20110211
  3. NASONEX [Concomitant]
  4. VALTREX [Concomitant]
  5. YAZ /01502501/ [Concomitant]
  6. KAPIDEX [Concomitant]
  7. CARAFATE [Concomitant]
     Dates: start: 20101201

REACTIONS (2)
  - FLATULENCE [None]
  - ABDOMINAL DISCOMFORT [None]
